FAERS Safety Report 4644828-1 (Version None)
Quarter: 2005Q2

REPORT INFORMATION
  Report Type: 
  Country: None (occurrence: None)
  Receive Date: 20050426
  Receipt Date: 20040310
  Transmission Date: 20051028
  Serious: Yes (Other)
  Sender: FDA-Public Use
  Company Number: US-MERCK-0403USA01232

PATIENT
  Age: 75 Year
  Sex: Female
  Weight: 79 kg

DRUGS (6)
  1. VIOXX [Suspect]
     Indication: ARTHRITIS
     Route: 065
     Dates: start: 20000918
  2. LOTREL [Concomitant]
     Route: 065
  3. NORVASC [Concomitant]
     Route: 065
     Dates: end: 20020811
  4. CELEBREX [Concomitant]
     Route: 065
  5. LORAZEPAM [Concomitant]
     Route: 065
     Dates: start: 20030101
  6. VENLAFAXINE HYDROCHLORIDE [Concomitant]
     Route: 065
     Dates: start: 20020425

REACTIONS (34)
  - ANGINA UNSTABLE [None]
  - ANXIETY [None]
  - ANXIETY DISORDER [None]
  - ARTHRALGIA [None]
  - ASTHENIA [None]
  - CARDIAC DISORDER [None]
  - CARDIAC MURMUR [None]
  - CAROTID ARTERY STENOSIS [None]
  - CARPAL TUNNEL SYNDROME [None]
  - CHRONIC OBSTRUCTIVE PULMONARY DISEASE [None]
  - CORONARY ARTERY ATHEROSCLEROSIS [None]
  - DEAFNESS [None]
  - DEMENTIA [None]
  - DEPRESSION [None]
  - DYSKINESIA [None]
  - EMOTIONAL DISTRESS [None]
  - FOOT DEFORMITY [None]
  - GASTROOESOPHAGEAL REFLUX DISEASE [None]
  - HEPATITIS B [None]
  - HYPERTENSION [None]
  - JOINT SPRAIN [None]
  - MYOCARDIAL ISCHAEMIA [None]
  - NEUROPATHY PERIPHERAL [None]
  - OSTEOPOROSIS [None]
  - OTITIS MEDIA [None]
  - PALPITATIONS [None]
  - PANIC DISORDER [None]
  - PELVIC PAIN [None]
  - PERIPHERAL VASCULAR DISORDER [None]
  - PRESCRIBED OVERDOSE [None]
  - RHEUMATOID ARTHRITIS [None]
  - SCHIZOPHRENIA, PARANOID TYPE [None]
  - TOE DEFORMITY [None]
  - VENOUS INSUFFICIENCY [None]
